FAERS Safety Report 21139696 (Version 3)
Quarter: 2022Q3

REPORT INFORMATION
  Report Type: Spontaneous
  Country: AU (occurrence: AU)
  Receive Date: 20220727
  Receipt Date: 20220818
  Transmission Date: 20221027
  Serious: Yes (Hospitalization, Other)
  Sender: FDA-Public Use
  Company Number: AU-MACLEODS PHARMACEUTICALS US LTD-MAC2022036553

PATIENT

DRUGS (9)
  1. LIDOCAINE [Interacting]
     Active Substance: LIDOCAINE
     Indication: Pain
     Dosage: 1 MILLILITER, SINGLE, 0.8 MILLIGRAM/KILOGRAM (AN INJECTION OF 1 ML OF 1% LIDOCAINE)
     Route: 042
  2. CANNABIDIOL [Interacting]
     Active Substance: CANNABIDIOL
     Indication: Severe myoclonic epilepsy of infancy
     Dosage: UNK
     Route: 065
  3. CANNABIDIOL [Interacting]
     Active Substance: CANNABIDIOL
     Indication: Seizure
  4. VALPROATE SODIUM [Interacting]
     Active Substance: VALPROATE SODIUM
     Indication: Severe myoclonic epilepsy of infancy
     Dosage: UNK
     Route: 065
  5. VALPROATE SODIUM [Interacting]
     Active Substance: VALPROATE SODIUM
     Indication: Seizure
  6. CLOBAZAM [Interacting]
     Active Substance: CLOBAZAM
     Indication: Severe myoclonic epilepsy of infancy
     Dosage: UNK
     Route: 065
  7. CLOBAZAM [Interacting]
     Active Substance: CLOBAZAM
     Indication: Seizure
  8. STIRIPENTOL [Interacting]
     Active Substance: STIRIPENTOL
     Indication: Severe myoclonic epilepsy of infancy
     Dosage: UNK
     Route: 065
  9. STIRIPENTOL [Interacting]
     Active Substance: STIRIPENTOL
     Indication: Seizure

REACTIONS (2)
  - Generalised tonic-clonic seizure [Recovered/Resolved]
  - Drug interaction [Unknown]
